FAERS Safety Report 22372340 (Version 1)
Quarter: 2023Q2

REPORT INFORMATION
  Report Type: Spontaneous
  Country: US (occurrence: US)
  Receive Date: 20230526
  Receipt Date: 20230526
  Transmission Date: 20230722
  Serious: No
  Sender: FDA-Public Use
  Company Number: US-BRISTOL-MYERS SQUIBB COMPANY-2023-070010

PATIENT
  Sex: Male
  Weight: 63 kg

DRUGS (2)
  1. OPDIVO [Suspect]
     Active Substance: NIVOLUMAB
     Indication: Renal cancer
     Dosage: OPDIVO FIRST AT 1 MG/KG OVER 30 MINUTES,THEY GAVE THE REMAINDER OF THEINFUSION AT A LOWER RATE OF 15
  2. YERVOY [Suspect]
     Active Substance: IPILIMUMAB
     Indication: Renal cancer

REACTIONS (1)
  - Paraesthesia [Unknown]

NARRATIVE: CASE EVENT DATE: 20230517
